FAERS Safety Report 24805446 (Version 1)
Quarter: 2025Q1

REPORT INFORMATION
  Report Type: Spontaneous
  Country: US (occurrence: None)
  Receive Date: 20250103
  Receipt Date: 20250103
  Transmission Date: 20250409
  Serious: No
  Sender: FDA-CTU
  Company Number: None

PATIENT

DRUGS (2)
  1. ASPIRIN [Suspect]
     Active Substance: ASPIRIN
  2. OFEV [Suspect]
     Active Substance: NINTEDANIB

REACTIONS (6)
  - Therapy cessation [None]
  - Ulcer haemorrhage [None]
  - Haemorrhage [None]
  - Diarrhoea [None]
  - Faeces discoloured [None]
  - Oxygen saturation abnormal [None]
